FAERS Safety Report 15269932 (Version 2)
Quarter: 2018Q3

REPORT INFORMATION
  Report Type: Spontaneous
  Country: US (occurrence: US)
  Receive Date: 20180813
  Receipt Date: 20180822
  Transmission Date: 20181010
  Serious: Yes (Other)
  Sender: FDA-Public Use
  Company Number: US-PFIZER INC-2018323828

PATIENT
  Age: 8 Year
  Sex: Male

DRUGS (2)
  1. GENOTROPIN MQ [Suspect]
     Active Substance: SOMATROPIN
     Dosage: 1 MG, ALTERNATE DAY (1MG AND 1.2MG, ALTERNATING DOSE 7 DAYS A WEEK)
     Dates: end: 201707
  2. GENOTROPIN MQ [Suspect]
     Active Substance: SOMATROPIN
     Indication: BLOOD GROWTH HORMONE
     Dosage: 1.2 MG, ALTERNATE DAY (1MG AND 1.2MG, ALTERNATING DOSE 7 DAYS A WEEK)
     Dates: start: 20170601

REACTIONS (2)
  - Autoimmune disorder [Unknown]
  - Parapsoriasis [Recovering/Resolving]

NARRATIVE: CASE EVENT DATE: 2017
